FAERS Safety Report 24340484 (Version 2)
Quarter: 2024Q3

REPORT INFORMATION
  Report Type: Spontaneous
  Country: US (occurrence: US)
  Receive Date: 20240919
  Receipt Date: 20240923
  Transmission Date: 20241017
  Serious: No
  Sender: BIOGEN
  Company Number: US-BIOGEN-2024BI01283181

PATIENT
  Sex: Female
  Weight: 157.99 kg

DRUGS (1)
  1. PLEGRIDY [Suspect]
     Active Substance: PEGINTERFERON BETA-1A
     Indication: Relapsing-remitting multiple sclerosis
     Dosage: 2014/2015
     Route: 050
     Dates: start: 2014

REACTIONS (4)
  - Micturition urgency [Not Recovered/Not Resolved]
  - Urinary retention [Not Recovered/Not Resolved]
  - Hypoaesthesia [Recovered/Resolved]
  - Influenza like illness [Recovered/Resolved]

NARRATIVE: CASE EVENT DATE: 20240101
